FAERS Safety Report 5724869-3 (Version None)
Quarter: 2008Q2

REPORT INFORMATION
  Report Type: 
  Country: None (occurrence: None)
  Receive Date: 20080430
  Receipt Date: 20080430
  Transmission Date: 20081010
  Serious: Yes (Hospitalization)
  Sender: FDA-Public Use
  Company Number: None

PATIENT
  Sex: Female
  Weight: 50 kg

DRUGS (6)
  1. BEVACIZUMAB (RHUMAB VEGF) [Suspect]
     Dosage: 508 MG
     Dates: end: 20080228
  2. LEUCOVORIN CALCIUM [Suspect]
     Dosage: 1768 MG
     Dates: end: 20080326
  3. ELOXATIN [Suspect]
     Dates: end: 20080130
  4. FLUOROURACIL [Suspect]
     Dosage: 9900 MG
     Dates: end: 20080328
  5. HYDROCLORATHIAZIDE [Concomitant]
  6. RAMIPRAL [Concomitant]

REACTIONS (8)
  - ASCITES [None]
  - GASTROINTESTINAL ANASTOMOTIC LEAK [None]
  - HAEMOGLOBIN DECREASED [None]
  - INTESTINAL OBSTRUCTION [None]
  - INTRA-ABDOMINAL HAEMORRHAGE [None]
  - NEUROPATHY PERIPHERAL [None]
  - POST PROCEDURAL COMPLICATION [None]
  - RETROPERITONEAL HAEMORRHAGE [None]
